FAERS Safety Report 16521463 (Version 1)
Quarter: 2019Q3

REPORT INFORMATION
  Report Type: Report from Study
  Country: FR (occurrence: FR)
  Receive Date: 20190702
  Receipt Date: 20190702
  Transmission Date: 20191004
  Serious: Yes (Other)
  Sender: FDA-Public Use
  Company Number: PHHO2019FR006282

PATIENT
  Age: 61 Year
  Sex: Female

DRUGS (2)
  1. AMN107 [Suspect]
     Active Substance: NILOTINIB
     Indication: CHRONIC MYELOID LEUKAEMIA
     Dosage: 300 MG, Q12H
     Route: 048
     Dates: start: 20160805
  2. PEGASYS [Suspect]
     Active Substance: PEGINTERFERON ALFA-2A
     Indication: CHRONIC MYELOID LEUKAEMIA
     Dosage: 45 MICROGRAMX 1/ WEEK
     Route: 058
     Dates: start: 20160706

REACTIONS (1)
  - Xanthelasma [Recovered/Resolved]

NARRATIVE: CASE EVENT DATE: 20180125
